FAERS Safety Report 13257688 (Version 2)
Quarter: 2017Q1

REPORT INFORMATION
  Report Type: Spontaneous
  Country: GB (occurrence: GB)
  Receive Date: 20170221
  Receipt Date: 20170303
  Transmission Date: 20170428
  Serious: Yes (Other)
  Sender: FDA-Public Use
  Company Number: GB-PFIZER INC-2017067537

PATIENT
  Age: 63 Year
  Sex: Female
  Weight: 74 kg

DRUGS (1)
  1. PROPOFOL. [Suspect]
     Active Substance: PROPOFOL
     Indication: GENERAL ANAESTHESIA
     Dosage: 200 MG, UNK
     Route: 042
     Dates: start: 201607, end: 20160804

REACTIONS (2)
  - Urticaria [Recovered/Resolved]
  - Tryptase increased [Recovered/Resolved]

NARRATIVE: CASE EVENT DATE: 201607
